FAERS Safety Report 16181437 (Version 2)
Quarter: 2019Q2

REPORT INFORMATION
  Report Type: Report from Study
  Country: US (occurrence: US)
  Receive Date: 20190410
  Receipt Date: 20190514
  Transmission Date: 20190711
  Serious: Yes (Hospitalization, Disabling, Other)
  Sender: FDA-Public Use
  Company Number: US-009507513-1904USA002332

PATIENT
  Sex: Female

DRUGS (7)
  1. HYDROMORPHONE [Concomitant]
     Active Substance: HYDROMORPHONE
  2. HALDOL [Concomitant]
     Active Substance: HALOPERIDOL
  3. KEYTRUDA [Suspect]
     Active Substance: PEMBROLIZUMAB
     Indication: ADRENOCORTICAL CARCINOMA
     Dosage: 200 MILLIGRAM EVERY 21 DAYS
     Route: 042
     Dates: end: 20190315
  4. BISACODYL. [Concomitant]
     Active Substance: BISACODYL
  5. LACTULOSE. [Concomitant]
     Active Substance: LACTULOSE
  6. PREDNISONE. [Concomitant]
     Active Substance: PREDNISONE
  7. SYNTHROID [Concomitant]
     Active Substance: LEVOTHYROXINE SODIUM

REACTIONS (8)
  - Thrombocytopenia [Unknown]
  - Acute kidney injury [Unknown]
  - Anaemia [Unknown]
  - Malignant ascites [Unknown]
  - Malignant neoplasm progression [Unknown]
  - Generalised oedema [Unknown]
  - Product use in unapproved indication [Unknown]
  - Hypokalaemia [Unknown]
